FAERS Safety Report 7115300-4 (Version None)
Quarter: 2010Q4

REPORT INFORMATION
  Report Type: 
  Country: None (occurrence: None)
  Receive Date: 20101122
  Receipt Date: 20101112
  Transmission Date: 20110411
  Serious: Yes (Hospitalization, Other)
  Sender: FDA-Public Use
  Company Number: US-US-EMD SERONO, INC.-7027506

PATIENT
  Sex: Female

DRUGS (1)
  1. REBIF [Suspect]
     Indication: PRODUCT USED FOR UNKNOWN INDICATION
     Route: 058
     Dates: start: 20090323

REACTIONS (7)
  - APHASIA [None]
  - BLINDNESS [None]
  - FALL [None]
  - FEMUR FRACTURE [None]
  - HEADACHE [None]
  - MOVEMENT DISORDER [None]
  - VOMITING [None]
